FAERS Safety Report 18992987 (Version 3)
Quarter: 2023Q2

REPORT INFORMATION
  Report Type: Spontaneous
  Country: US (occurrence: US)
  Receive Date: 20210310
  Receipt Date: 20230411
  Transmission Date: 20230721
  Serious: Yes (Other)
  Sender: FDA-Public Use
  Company Number: US-GILEAD-2021-0519932

PATIENT
  Sex: Male
  Weight: 54.422 kg

DRUGS (24)
  1. TRUVADA [Suspect]
     Active Substance: EMTRICITABINE\TENOFOVIR DISOPROXIL FUMARATE
     Indication: HIV infection
     Dosage: UNK
     Route: 048
     Dates: start: 2007
  2. TRUVADA [Suspect]
     Active Substance: EMTRICITABINE\TENOFOVIR DISOPROXIL FUMARATE
     Dosage: UNK
     Route: 048
     Dates: start: 2005, end: 2008
  3. VIREAD [Suspect]
     Active Substance: TENOFOVIR DISOPROXIL FUMARATE
     Indication: HIV infection
     Dosage: UNK
     Route: 048
     Dates: start: 2007
  4. VIREAD [Suspect]
     Active Substance: TENOFOVIR DISOPROXIL FUMARATE
     Dosage: UNK
     Route: 048
     Dates: start: 2008, end: 201812
  5. BIKTARVY [Concomitant]
     Active Substance: BICTEGRAVIR SODIUM\EMTRICITABINE\TENOFOVIR ALAFENAMIDE FUMARATE
  6. CALCIUM [Concomitant]
     Active Substance: CALCIUM
  7. VITAMIN D NOS [Concomitant]
     Active Substance: VITAMIN D NOS
  8. TESTOSTERONE [Concomitant]
     Active Substance: TESTOSTERONE
  9. WELLBUTRIN [Concomitant]
     Active Substance: BUPROPION HYDROCHLORIDE
  10. KLONOPIN [Concomitant]
     Active Substance: CLONAZEPAM
  11. LEXAPRO [Concomitant]
     Active Substance: ESCITALOPRAM OXALATE
  12. INTELENCE [Concomitant]
     Active Substance: ETRAVIRINE
  13. ISENTRESS [Concomitant]
     Active Substance: RALTEGRAVIR POTASSIUM
  14. CYANOCOBALAMIN [Concomitant]
     Active Substance: CYANOCOBALAMIN
  15. SILDENAFIL [Concomitant]
     Active Substance: SILDENAFIL
  16. LEVITRA [Concomitant]
     Active Substance: VARDENAFIL HYDROCHLORIDE
  17. NIASPAN [Concomitant]
     Active Substance: NIACIN
  18. LOVAZA [Concomitant]
     Active Substance: OMEGA-3-ACID ETHYL ESTERS
  19. ATORVASTATIN [Concomitant]
     Active Substance: ATORVASTATIN
  20. VALACYCLOVIR HYDROCHLORIDE [Concomitant]
     Active Substance: VALACYCLOVIR HYDROCHLORIDE
  21. INDOMETHACIN [Concomitant]
     Active Substance: INDOMETHACIN
  22. OSELTAMIVIR [Concomitant]
     Active Substance: OSELTAMIVIR
  23. CYCLOBENZAPRINE [Concomitant]
     Active Substance: CYCLOBENZAPRINE
  24. HYDROCORTISONE [Concomitant]
     Active Substance: HYDROCORTISONE

REACTIONS (10)
  - Multiple fractures [Unknown]
  - Renal impairment [Not Recovered/Not Resolved]
  - Osteoporosis [Not Recovered/Not Resolved]
  - Blood creatinine increased [Not Recovered/Not Resolved]
  - Bone density decreased [Unknown]
  - Emotional distress [Not Recovered/Not Resolved]
  - Anxiety [Not Recovered/Not Resolved]
  - Anhedonia [Not Recovered/Not Resolved]
  - Pain [Not Recovered/Not Resolved]
  - Depression [Not Recovered/Not Resolved]

NARRATIVE: CASE EVENT DATE: 20180101
